FAERS Safety Report 23884342 (Version 2)
Quarter: 2025Q1

REPORT INFORMATION
  Report Type: Spontaneous
  Country: US (occurrence: US)
  Receive Date: 20240522
  Receipt Date: 20250221
  Transmission Date: 20250409
  Serious: No
  Sender: CATALYST PHARMA
  Company Number: US-CATALYST PHARMACEUTICALS-US-CATA-24-00298

PATIENT
  Age: 5 Year
  Sex: Male
  Weight: 28.571 kg

DRUGS (14)
  1. AGAMREE [Suspect]
     Active Substance: VAMOROLONE
     Indication: Duchenne muscular dystrophy
     Dosage: 3.5 ML DAILY
     Route: 048
     Dates: start: 20240318
  2. PREDNISONE [Suspect]
     Active Substance: PREDNISONE
     Indication: Duchenne muscular dystrophy
     Route: 065
  3. TYLENOL [Concomitant]
     Active Substance: ACETAMINOPHEN
     Indication: Pyrexia
     Route: 065
  4. TYLENOL [Concomitant]
     Active Substance: ACETAMINOPHEN
     Indication: Respiratory tract infection
  5. MOTRIN [Concomitant]
     Active Substance: IBUPROFEN
     Indication: Pain
     Route: 065
  6. MOTRIN [Concomitant]
     Active Substance: IBUPROFEN
     Indication: Respiratory tract infection
  7. ALLERGY RELIEF [Concomitant]
     Indication: Hypersensitivity
     Route: 065
  8. DIMETAPP [Concomitant]
     Active Substance: BROMPHENIRAMINE\PSEUDOEPHEDRINE
     Indication: Respiratory tract infection
     Route: 065
  9. MELATONIN [Concomitant]
     Active Substance: MELATONIN
     Indication: Insomnia
     Route: 065
  10. VITAMIN D3 [Concomitant]
     Active Substance: CHOLECALCIFEROL
     Indication: Bone disorder
     Dosage: 10MCG GUMMY ONCE A DAY
     Route: 065
  11. COENZYME Q10 [Concomitant]
     Active Substance: DIETARY SUPPLEMENT\UBIDECARENONE
     Indication: Cardiac disorder
     Dosage: 100MG GUMMY ONCE A DAY
     Route: 065
  12. VITAMIN C [Concomitant]
     Active Substance: ASCORBIC ACID
     Indication: Respiratory tract infection
     Dosage: 2000MG ONCE A DAY
     Route: 065
  13. VITAMINS [Concomitant]
     Active Substance: VITAMINS
     Indication: Hypovitaminosis
     Dosage: GUMMY 4 ONCE A DAY
     Route: 065
  14. VITAMIN D6 [Concomitant]
     Indication: Hypovitaminosis
     Dosage: 20MG ONCE A DAY
     Route: 065

REACTIONS (3)
  - Frustration tolerance decreased [Recovering/Resolving]
  - Anger [Recovering/Resolving]
  - Abnormal behaviour [Recovering/Resolving]

NARRATIVE: CASE EVENT DATE: 20240401
